FAERS Safety Report 26174148 (Version 1)
Quarter: 2025Q4

REPORT INFORMATION
  Report Type: Spontaneous
  Country: US (occurrence: US)
  Receive Date: 20251218
  Receipt Date: 20251218
  Transmission Date: 20260117
  Serious: No
  Sender: ALVOGEN
  Company Number: US-ALVOGEN-2025096249

PATIENT
  Sex: Female

DRUGS (2)
  1. FENTANYL [Suspect]
     Active Substance: FENTANYL
     Indication: Product used for unknown indication
     Dosage: PREVIOUS BOX?USING FOR THE PAST+YEAR
     Route: 062
  2. FENTANYL [Suspect]
     Active Substance: FENTANYL
     Indication: Product used for unknown indication
     Dosage: EXPIRATION DATE: JUL-2027?100 MCG/H
     Route: 062

REACTIONS (2)
  - Poor quality device used [Unknown]
  - Physical product label issue [Unknown]
